FAERS Safety Report 6375555-0 (Version None)
Quarter: 2009Q3

REPORT INFORMATION
  Report Type: 
  Country: None (occurrence: None)
  Receive Date: 20090924
  Receipt Date: 20090916
  Transmission Date: 20100115
  Serious: Yes (Hospitalization, Other)
  Sender: FDA-Public Use
  Company Number: FR-JNJFOC-20090904818

PATIENT
  Age: 57 Year
  Sex: Male

DRUGS (8)
  1. TAVANIC [Suspect]
     Indication: POSTOPERATIVE WOUND INFECTION
     Route: 048
     Dates: start: 20080410, end: 20080417
  2. LOVENOX [Suspect]
     Indication: THROMBOSIS PROPHYLAXIS
     Route: 058
     Dates: start: 20080301, end: 20080422
  3. RIFAMPICIN [Suspect]
     Indication: POSTOPERATIVE WOUND INFECTION
     Route: 048
     Dates: start: 20080410, end: 20080417
  4. CAPTOPRIL [Concomitant]
     Route: 048
  5. TENORMIN [Concomitant]
     Route: 048
  6. KARDEGIC [Concomitant]
     Route: 048
  7. TAHOR [Concomitant]
     Route: 048
  8. PARIET [Concomitant]
     Route: 048

REACTIONS (5)
  - ANGIOEDEMA [None]
  - DRUG ADMINISTRATION ERROR [None]
  - LIP OEDEMA [None]
  - TONGUE OEDEMA [None]
  - URTICARIA [None]
